FAERS Safety Report 22052058 (Version 2)
Quarter: 2023Q1

REPORT INFORMATION
  Report Type: Other
  Country: TW (occurrence: None)
  Receive Date: 20230302
  Receipt Date: 20230320
  Transmission Date: 20230418
  Serious: Yes (Other)
  Sender: FDA-Public Use
  Company Number: TW-ROCHE-3237416

PATIENT
  Age: 62 Year
  Sex: Male

DRUGS (1)
  1. AVASTIN [Suspect]
     Active Substance: BEVACIZUMAB
     Indication: Hepatocellular carcinoma
     Route: 065
     Dates: start: 20211203

REACTIONS (2)
  - Proteinuria [Not Recovered/Not Resolved]
  - Glucose urine present [Unknown]
